FAERS Safety Report 21660905 (Version 1)
Quarter: 2022Q4

REPORT INFORMATION
  Report Type: Report from Study
  Country: IT (occurrence: IT)
  Receive Date: 20221130
  Receipt Date: 20221130
  Transmission Date: 20230112
  Serious: Yes (Other)
  Sender: FDA-Public Use
  Company Number: IT-JNJFOC-20221164632

PATIENT
  Age: 4 Year
  Sex: Female

DRUGS (1)
  1. VERMOX [Suspect]
     Active Substance: MEBENDAZOLE
     Indication: Product used for unknown indication
     Route: 048

REACTIONS (4)
  - Accidental exposure to product [Unknown]
  - Ataxia [Unknown]
  - Hallucination [Unknown]
  - Failure of child resistant product closure [Unknown]
